FAERS Safety Report 4494544-4 (Version None)
Quarter: 2004Q4

REPORT INFORMATION
  Report Type: 
  Country: None (occurrence: None)
  Receive Date: 20041105
  Receipt Date: 20041018
  Transmission Date: 20050328
  Serious: Yes (Other)
  Sender: FDA-Public Use
  Company Number: BE-MERCK-0410BEL00015

PATIENT
  Age: 69 Year
  Sex: Male

DRUGS (2)
  1. ZETIA [Suspect]
     Route: 048
     Dates: start: 20040801
  2. SIMVASTATIN [Concomitant]
     Route: 048

REACTIONS (1)
  - ANEURYSM RUPTURED [None]
